FAERS Safety Report 10103573 (Version 6)
Quarter: 2015Q2

REPORT INFORMATION
  Report Type: Report from Study
  Country: JP (occurrence: JP)
  Receive Date: 20140424
  Receipt Date: 20150626
  Transmission Date: 20150821
  Serious: Yes (Hospitalization, Other)
  Sender: FDA-Public Use
  Company Number: JP-UCBSA-119110

PATIENT
  Age: 40 Year
  Sex: Female
  Weight: 50.4 kg

DRUGS (18)
  1. METHOTREXATE [Concomitant]
     Active Substance: METHOTREXATE
     Dosage: 8 MG, 3X/WEEK
     Route: 048
     Dates: start: 20120305, end: 2012
  2. CELECOXIB. [Concomitant]
     Active Substance: CELECOXIB
     Indication: RHEUMATOID ARTHRITIS
     Dosage: 200 MG, 2X/DAY (BID)
     Route: 048
     Dates: start: 20121205
  3. SODIUM RABEPRAZOLE [Concomitant]
     Active Substance: RABEPRAZOLE SODIUM
     Indication: PROPHYLAXIS AGAINST GASTROINTESTINAL ULCER
     Dosage: 10 MG, ONCE DAILY (QD)
     Route: 048
     Dates: start: 20130130
  4. METHOTREXATE [Concomitant]
     Active Substance: METHOTREXATE
     Dosage: 8 MG, 3X/WEEK
     Route: 048
     Dates: start: 20120625
  5. METHOTREXATE [Concomitant]
     Active Substance: METHOTREXATE
     Dosage: 16 MG, 3X/WEEK
     Route: 048
     Dates: start: 20120430, end: 2012
  6. FOLIC ACID. [Concomitant]
     Active Substance: FOLIC ACID
     Indication: PROPHYLAXIS
     Dosage: 5 MG, ONCE DAILY (QD)
     Route: 048
     Dates: start: 20120208
  7. FOLIC ACID. [Concomitant]
     Active Substance: FOLIC ACID
     Dosage: 5 MG, WEEKLY (QW)
     Route: 048
     Dates: start: 20120808
  8. CERTOLIZUMAB PEGOL RA [Suspect]
     Active Substance: CERTOLIZUMAB PEGOL
     Indication: RHEUMATOID ARTHRITIS
     Dosage: 200 MG, EV 2 WEEKS(QOW)
     Route: 058
     Dates: start: 20121012, end: 20140212
  9. BEPOTASTINE BESILATE [Concomitant]
     Active Substance: BEPOTASTINE BESILATE
     Dosage: 10 MG, 2X/DAY (BID)
     Route: 048
     Dates: start: 20120509
  10. KETOPROFEN. [Concomitant]
     Active Substance: KETOPROFEN
     Indication: RHEUMATOID ARTHRITIS
     Dosage: ADEQUATE DOSE
     Route: 061
     Dates: start: 20120606
  11. PLACEBO [Suspect]
     Active Substance: UNSPECIFIED INGREDIENT
     Indication: RHEUMATOID ARTHRITIS
     Dosage: UNK, EV 2 WEEKS(QOW)
     Route: 058
     Dates: start: 20120229, end: 20120926
  12. METHOTREXATE [Concomitant]
     Active Substance: METHOTREXATE
     Indication: RHEUMATOID ARTHRITIS
     Dosage: 8 MG, WEEKLY (QW)
     Route: 048
     Dates: start: 20121210
  13. METHOTREXATE [Concomitant]
     Active Substance: METHOTREXATE
     Dosage: 10 MG, 3X/WEEK
     Route: 048
     Dates: start: 20120514, end: 2012
  14. REBAMIPIDE [Concomitant]
     Active Substance: REBAMIPIDE
     Dosage: 100 MG, 3X/DAY (TID)
     Route: 048
     Dates: start: 20120229
  15. LOXOPROFEN SODIUM HYDRATE [Concomitant]
     Active Substance: LOXOPROFEN SODIUM DIHYDRATE
     Dosage: 60 MG, 3X/DAY (TID)
     Route: 048
     Dates: start: 20120208
  16. METHOTREXATE [Concomitant]
     Active Substance: METHOTREXATE
     Dosage: 12 MG, 3X/WEEK
     Route: 048
     Dates: start: 20120402, end: 201204
  17. PEMIROLAST POTASSIUM [Concomitant]
     Active Substance: PEMIROLAST POTASSIUM
     Dosage: ADEQUATE DSOE
     Route: 047
     Dates: start: 20120523
  18. MINODRONIC ACID HYDRATE [Concomitant]
     Indication: BONE DENSITY DECREASED
     Dosage: 50 MG, ONCE DAILY (QD)
     Route: 048
     Dates: start: 20131101

REACTIONS (1)
  - Thyroid cancer [Recovering/Resolving]

NARRATIVE: CASE EVENT DATE: 20140409
